FAERS Safety Report 19608422 (Version 1)
Quarter: 2021Q3

REPORT INFORMATION
  Report Type: Spontaneous
  Country: US (occurrence: US)
  Receive Date: 20210723
  Receipt Date: 20210723
  Transmission Date: 20211014
  Serious: Yes (Hospitalization)
  Sender: FDA-Public Use
  Company Number: None

PATIENT
  Age: 87 Year
  Sex: Male
  Weight: 76.5 kg

DRUGS (1)
  1. BAMLANIVIMAB INJECTION [Suspect]
     Active Substance: BAMLANIVIMAB
     Indication: COVID-19
     Dosage: ?          OTHER FREQUENCY:ONCE;?
     Route: 041
     Dates: start: 20210408, end: 20210408

REACTIONS (4)
  - Encephalopathy [None]
  - Dehydration [None]
  - Blood pressure increased [None]
  - Pneumonia [None]

NARRATIVE: CASE EVENT DATE: 20210416
